FAERS Safety Report 25941688 (Version 1)
Quarter: 2025Q4

REPORT INFORMATION
  Report Type: Spontaneous
  Country: EU (occurrence: EU)
  Receive Date: 20251020
  Receipt Date: 20251020
  Transmission Date: 20260117
  Serious: Yes (Hospitalization, Disabling)
  Sender: MYLAN
  Company Number: None

PATIENT
  Age: 72 Year
  Sex: Male

DRUGS (2)
  1. OXALIPLATIN [Suspect]
     Active Substance: OXALIPLATIN
     Indication: Colorectal cancer metastatic
     Dosage: 120 MILLIGRAM, Q2W
     Dates: start: 20240506, end: 20240808
  2. FLUOROURACIL [Suspect]
     Active Substance: FLUOROURACIL
     Indication: Colorectal cancer metastatic
     Dosage: 4200 MILLIGRAM, Q2W
     Dates: start: 20240506, end: 20240808

REACTIONS (1)
  - Venoocclusive liver disease [Recovered/Resolved with Sequelae]

NARRATIVE: CASE EVENT DATE: 20240902
